FAERS Safety Report 7541335-3 (Version None)
Quarter: 2011Q2

REPORT INFORMATION
  Report Type: 
  Country: None (occurrence: None)
  Receive Date: 20110612
  Receipt Date: 20110601
  Transmission Date: 20111010
  Serious: Yes (Other)
  Sender: FDA-Public Use
  Company Number: CA-ELI_LILLY_AND_COMPANY-CA201106000301

PATIENT
  Sex: Female

DRUGS (1)
  1. CYMBALTA [Suspect]
     Dosage: UNK, UNKNOWN

REACTIONS (2)
  - GASTRIC BANDING [None]
  - DYSPHAGIA [None]
